FAERS Safety Report 12054403 (Version 3)
Quarter: 2016Q3

REPORT INFORMATION
  Report Type: Spontaneous
  Country: US (occurrence: US)
  Receive Date: 20160209
  Receipt Date: 20160810
  Transmission Date: 20161109
  Serious: Yes (Other)
  Sender: FDA-Public Use
  Company Number: US-BAYER-2016-022149

PATIENT
  Sex: Male
  Weight: 95.24 kg

DRUGS (4)
  1. AVELOX [Suspect]
     Active Substance: MOXIFLOXACIN HYDROCHLORIDE
  2. CIPRO [Suspect]
     Active Substance: CIPROFLOXACIN HYDROCHLORIDE
     Indication: PROSTATE INFECTION
     Dosage: 500 MG, UNK
     Dates: start: 1990
  3. CIPRO [Suspect]
     Active Substance: CIPROFLOXACIN HYDROCHLORIDE
     Indication: PROSTATE INFECTION
     Dosage: UNK
     Dates: start: 20020801, end: 2009
  4. LEVAQUIN [Suspect]
     Active Substance: LEVOFLOXACIN

REACTIONS (10)
  - Peripheral nerve injury [None]
  - Musculoskeletal injury [None]
  - Neuropathy peripheral [Not Recovered/Not Resolved]
  - Injury [None]
  - Pain [None]
  - Mental disorder [None]
  - Nervous system disorder [None]
  - Skin injury [None]
  - Cardiovascular disorder [None]
  - Emotional distress [None]
